FAERS Safety Report 6054168-4 (Version None)
Quarter: 2009Q1

REPORT INFORMATION
  Report Type: 
  Country: None (occurrence: None)
  Receive Date: 20090127
  Receipt Date: 20090122
  Transmission Date: 20090719
  Serious: Yes (Hospitalization)
  Sender: FDA-Public Use
  Company Number: US-ABBOTT-09P-163-0499260-00

PATIENT
  Sex: Male
  Weight: 83.99 kg

DRUGS (12)
  1. HUMIRA [Suspect]
     Indication: CROHN'S DISEASE
     Route: 058
     Dates: start: 20090107, end: 20090109
  2. KEPPRA [Concomitant]
     Indication: CONVULSION
     Route: 048
  3. TRILEPTAL [Concomitant]
     Indication: CONVULSION
     Route: 048
  4. KLONOPIN [Concomitant]
     Indication: CONVULSION
     Route: 048
  5. XANAX [Concomitant]
     Indication: STRESS
     Route: 048
  6. XANAX [Concomitant]
     Indication: PANIC DISORDER
  7. PERCOCET [Concomitant]
     Indication: PAIN
     Route: 048
  8. OXYCODONE HCL [Concomitant]
     Indication: PAIN
     Route: 048
  9. FLAGYL [Concomitant]
     Indication: CLOSTRIDIAL INFECTION
     Route: 048
  10. HYDROXYZINE HCL [Concomitant]
     Indication: NAUSEA
     Route: 048
  11. OXCARBAZEPINE [Concomitant]
     Indication: DRUG USE FOR UNKNOWN INDICATION
     Route: 048
  12. PREGABALIN [Concomitant]
     Indication: DRUG USE FOR UNKNOWN INDICATION
     Route: 048

REACTIONS (9)
  - BLOOD PRESSURE IMMEASURABLE [None]
  - HEART RATE INCREASED [None]
  - HYPERTENSION [None]
  - HYPOTENSION [None]
  - PULSE ABSENT [None]
  - RECTAL ABSCESS [None]
  - RESPIRATORY ARREST [None]
  - STAPHYLOCOCCAL INFECTION [None]
  - SYNCOPE [None]
